FAERS Safety Report 5421997-7 (Version None)
Quarter: 2007Q3

REPORT INFORMATION
  Report Type: 
  Country: None (occurrence: None)
  Receive Date: 20070822
  Receipt Date: 20070815
  Transmission Date: 20080115
  Serious: Yes (Other)
  Sender: FDA-Public Use
  Company Number: PHMT2007CA01600

PATIENT
  Sex: Female

DRUGS (3)
  1. TEGRETOL [Suspect]
     Indication: BIPOLAR DISORDER
     Dosage: 400 MG, QD
     Route: 048
  2. WELLBUTRIN XL [Concomitant]
     Dosage: 300 MG A DAY
  3. LITHIUM CARBONATE [Concomitant]
     Dosage: 600 MG A DAY

REACTIONS (4)
  - HAIR GROWTH ABNORMAL [None]
  - MENSTRUAL DISORDER [None]
  - PIGMENTATION DISORDER [None]
  - POLYCYSTIC OVARIES [None]
